FAERS Safety Report 20659037 (Version 1)
Quarter: 2022Q1

REPORT INFORMATION
  Report Type: Spontaneous
  Country: US (occurrence: None)
  Receive Date: 20220331
  Receipt Date: 20220331
  Transmission Date: 20220423
  Serious: Yes (Other)
  Sender: FDA-Public Use
  Company Number: None

PATIENT
  Sex: Female

DRUGS (3)
  1. YAZ [Suspect]
     Active Substance: DROSPIRENONE\ETHINYL ESTRADIOL
     Indication: Menstruation irregular
     Dates: start: 20081103, end: 20180122
  2. YAZ [Suspect]
     Active Substance: DROSPIRENONE\ETHINYL ESTRADIOL
     Indication: Autism spectrum disorder
     Dates: start: 2010, end: 20180122
  3. YAZ [Suspect]
     Active Substance: DROSPIRENONE\ETHINYL ESTRADIOL
     Indication: Thyroid function test abnormal

REACTIONS (5)
  - Weight increased [None]
  - Binge eating [None]
  - Abnormal behaviour [None]
  - Intermenstrual bleeding [None]
  - Product substitution issue [None]

NARRATIVE: CASE EVENT DATE: 20100311
